FAERS Safety Report 12197662 (Version 1)
Quarter: 2016Q1

REPORT INFORMATION
  Report Type: Spontaneous
  Country: US (occurrence: US)
  Receive Date: 20160322
  Receipt Date: 20160322
  Transmission Date: 20160526
  Serious: Yes (Hospitalization, Other)
  Sender: FDA-Public Use
  Company Number: US-AMGEN-USASP2016034078

PATIENT
  Age: 70 Year
  Sex: Female
  Weight: 132.7 kg

DRUGS (4)
  1. PROCRIT [Concomitant]
     Active Substance: ERYTHROPOIETIN
     Dosage: UNK
  2. LENALIDOMIDE [Concomitant]
     Active Substance: LENALIDOMIDE
     Dosage: 425 MG, UNK
     Dates: start: 20160222, end: 20160309
  3. DEXAMETHASONE. [Concomitant]
     Active Substance: DEXAMETHASONE
     Dosage: 60 MG, UNK
     Dates: start: 20160222, end: 20160307
  4. CARFILZOMIB [Suspect]
     Active Substance: CARFILZOMIB
     Indication: PLASMA CELL MYELOMA
     Dosage: 268.6 MG, UNK
     Route: 065
     Dates: start: 20160222, end: 20160308

REACTIONS (7)
  - Lung infection [Unknown]
  - Blood calcium abnormal [Unknown]
  - Hypotension [Recovered/Resolved]
  - Anaemia [Unknown]
  - Pulmonary embolism [Unknown]
  - Deep vein thrombosis [Unknown]
  - Acute kidney injury [Unknown]

NARRATIVE: CASE EVENT DATE: 20160307
